FAERS Safety Report 8556372-X (Version None)
Quarter: 2012Q3

REPORT INFORMATION
  Report Type: 
  Country: None (occurrence: None)
  Receive Date: 20120801
  Receipt Date: 20120723
  Transmission Date: 20120928
  Serious: Yes (Other)
  Sender: FDA-Public Use
  Company Number: US-JNJFOC-20120712433

PATIENT
  Sex: Female
  Weight: 58.97 kg

DRUGS (15)
  1. HYDROCODONE [Concomitant]
     Indication: PAIN
     Dosage: 10/325MG/TABLET EVERY 4 HOURS AS NEEDED
     Route: 048
     Dates: start: 20110701
  2. PLAQUENIL [Concomitant]
     Indication: RHEUMATOID ARTHRITIS
     Route: 048
     Dates: start: 20100101
  3. XANAX [Concomitant]
     Indication: ANXIETY
     Dosage: AS NEEDED
     Route: 048
     Dates: start: 20020101
  4. NUVIGIL [Concomitant]
     Indication: SLEEP APNOEA SYNDROME
     Dosage: AS NEEDED
     Route: 048
     Dates: start: 20120101
  5. LYRICA [Concomitant]
     Indication: FIBROMYALGIA
     Route: 048
     Dates: start: 20100101
  6. SOMA [Concomitant]
     Indication: MUSCLE SPASMS
     Dosage: AS NEEDED
     Route: 048
     Dates: start: 20090101
  7. LISINOPRIL AND HYDROCHLOROTHIAZIDE [Concomitant]
     Indication: BLOOD PRESSURE
     Dosage: 10/12.5MG/TABLET ONCE DAILY
     Route: 048
     Dates: start: 20080101
  8. TRAZODONE HYDROCHLORIDE [Concomitant]
     Indication: SLEEP DISORDER
     Route: 048
     Dates: start: 20070101
  9. EFFEXOR [Concomitant]
     Indication: DEPRESSION
     Route: 048
     Dates: start: 20000101
  10. REMICADE [Suspect]
     Indication: RHEUMATOID ARTHRITIS
     Route: 042
     Dates: start: 20120716
  11. PREVACID [Concomitant]
     Indication: GASTRIC DISORDER
     Route: 048
     Dates: start: 20020101
  12. LIDODERM [Concomitant]
     Indication: PAIN
     Dosage: 2-3 PATCHES AS NEEDED
     Route: 062
     Dates: start: 20070101
  13. OXYCONTIN [Concomitant]
     Indication: PAIN
     Route: 048
     Dates: start: 20110701
  14. RESTASIS [Concomitant]
     Indication: DRY EYE
     Route: 031
     Dates: start: 20120101
  15. VITAMIN D [Concomitant]
     Indication: VITAMIN SUPPLEMENTATION
     Route: 048
     Dates: start: 20120101

REACTIONS (2)
  - DEVICE OCCLUSION [None]
  - INFUSION SITE PAIN [None]
